FAERS Safety Report 6831324-6 (Version None)
Quarter: 2010Q3

REPORT INFORMATION
  Report Type: 
  Country: None (occurrence: None)
  Receive Date: 20100712
  Receipt Date: 20100630
  Transmission Date: 20110219
  Serious: Yes (Other)
  Sender: FDA-Public Use
  Company Number: US-PFIZER INC-2010082026

PATIENT
  Sex: Female
  Weight: 99.773 kg

DRUGS (4)
  1. CHANTIX [Suspect]
     Indication: SMOKING CESSATION THERAPY
     Dosage: 0.5 MG, 1X/DAY
     Route: 048
     Dates: start: 20100501, end: 20100601
  2. ACETYLSALICYLIC ACID [Suspect]
     Indication: PAIN
     Dosage: UNK
     Dates: start: 20100101, end: 20100101
  3. TYLENOL-500 [Suspect]
     Indication: PAIN
     Dosage: UNK
     Route: 048
     Dates: start: 20100101, end: 20100101
  4. ALBUTEROL [Concomitant]
     Indication: ASTHMA
     Dosage: UNK

REACTIONS (12)
  - ARTHRALGIA [None]
  - DRUG INEFFECTIVE [None]
  - DYSPHONIA [None]
  - IRRITABILITY [None]
  - MALAISE [None]
  - MUSCLE SPASMS [None]
  - MUSCULOSKELETAL STIFFNESS [None]
  - OEDEMA PERIPHERAL [None]
  - PAIN [None]
  - VITAMIN B12 DECREASED [None]
  - VITAMIN D DECREASED [None]
  - WEIGHT INCREASED [None]
